FAERS Safety Report 8966090 (Version 1)
Quarter: 2012Q4

REPORT INFORMATION
  Report Type: Report from Study
  Country: US (occurrence: US)
  Receive Date: 20121214
  Receipt Date: 20121214
  Transmission Date: 20130627
  Serious: Yes (Other)
  Sender: FDA-Public Use
  Company Number: US-ABBOTT-12P-163-1018450-00

PATIENT
  Sex: Female
  Weight: 81.27 kg

DRUGS (15)
  1. HUMIRA [Suspect]
     Indication: RHEUMATOID ARTHRITIS
     Dosage: Pen
     Dates: start: 2010, end: 201201
  2. HUMIRA [Suspect]
     Dates: start: 20121203
  3. UNSPECIFIED INGREDIENT [Suspect]
     Indication: RHEUMATOID ARTHRITIS
  4. DIOVAN [Concomitant]
     Indication: HYPERTENSION
  5. LESCOL [Concomitant]
     Indication: HYPERLIPIDAEMIA
  6. LEVOTHYROXINE [Concomitant]
     Indication: HYPOTHYROIDISM
  7. FOSAMAX [Concomitant]
     Indication: OSTEOPOROSIS
  8. KLOR-CON [Concomitant]
     Indication: MINERAL SUPPLEMENTATION
  9. AZATHIOPRINE [Concomitant]
     Indication: RHEUMATOID ARTHRITIS
  10. OMEPRAZOLE [Concomitant]
     Indication: GASTROOESOPHAGEAL REFLUX DISEASE
  11. AMLODIPINE [Concomitant]
     Indication: HYPERTENSION
  12. MELOXICAM [Concomitant]
     Indication: PAIN
  13. CALCIUM PLUS D [Concomitant]
     Indication: MINERAL SUPPLEMENTATION
  14. MULTIPLE VITAMINS [Concomitant]
     Indication: VITAMIN SUPPLEMENTATION
  15. ASPIRIN [Concomitant]
     Indication: CARDIAC DISORDER

REACTIONS (11)
  - Malaise [Recovered/Resolved]
  - Histoplasmosis [Recovered/Resolved]
  - Urinary tract infection [Recovered/Resolved]
  - Pyrexia [Recovered/Resolved]
  - Decreased appetite [Not Recovered/Not Resolved]
  - Weight decreased [Not Recovered/Not Resolved]
  - Osteonecrosis [Not Recovered/Not Resolved]
  - Blood potassium increased [Unknown]
  - Blood creatinine increased [Unknown]
  - Platelet count decreased [Unknown]
  - Blood pH decreased [Unknown]
